FAERS Safety Report 12609650 (Version 1)
Quarter: 2016Q3

REPORT INFORMATION
  Report Type: Spontaneous
  Country: GB (occurrence: GB)
  Receive Date: 20160801
  Receipt Date: 20160801
  Transmission Date: 20161109
  Serious: Yes (Other)
  Sender: FDA-Public Use
  Company Number: GB-ACCORD-042759

PATIENT
  Age: 28 Year
  Sex: Female
  Weight: 49.89 kg

DRUGS (4)
  1. COLOFAC [Concomitant]
     Active Substance: MEBEVERINE HYDROCHLORIDE
  2. BUSCOPAN [Concomitant]
     Active Substance: BUTYLSCOPOLAMINE BROMIDE
  3. LOPERAMIDE [Concomitant]
     Active Substance: LOPERAMIDE
  4. LISINOPRIL. [Suspect]
     Active Substance: LISINOPRIL
     Indication: HYPERTENSION
     Dosage: RECEIVED 5 MG FROM 06-JUN-2016 FOR 10 DAYS, THEN RECEIVED 10 MG FOR 2-3 WEEKS, THEN 20 MG
     Route: 048
     Dates: end: 20160707

REACTIONS (2)
  - Non-cardiac chest pain [Recovered/Resolved with Sequelae]
  - Neuropathy peripheral [Recovered/Resolved]
